FAERS Safety Report 13233853 (Version 1)
Quarter: 2017Q1

REPORT INFORMATION
  Report Type: Spontaneous
  Country: US (occurrence: US)
  Receive Date: 20170215
  Receipt Date: 20170215
  Transmission Date: 20170428
  Serious: No
  Sender: FDA-Public Use
  Company Number: US-ASTRAZENECA-2017SE13893

PATIENT

DRUGS (2)
  1. SEROQUEL [Suspect]
     Active Substance: QUETIAPINE FUMARATE
     Dosage: 25.0MG UNKNOWN
     Route: 048
  2. SEROQUEL [Suspect]
     Active Substance: QUETIAPINE FUMARATE
     Dosage: 37.5MG UNKNOWN
     Route: 048

REACTIONS (7)
  - Bipolar disorder [Unknown]
  - Sluggishness [Unknown]
  - Adverse drug reaction [Unknown]
  - Ill-defined disorder [Unknown]
  - Activities of daily living impaired [Unknown]
  - Somnolence [Unknown]
  - Fatigue [Unknown]
